FAERS Safety Report 16597826 (Version 1)
Quarter: 2019Q3

REPORT INFORMATION
  Report Type: Spontaneous
  Country: US (occurrence: US)
  Receive Date: 20190718
  Receipt Date: 20190718
  Transmission Date: 20191004
  Serious: Yes (Other)
  Sender: FDA-Public Use
  Company Number: None

PATIENT
  Age: 57 Year
  Sex: Female

DRUGS (9)
  1. ATORVASTATIN [Suspect]
     Active Substance: ATORVASTATIN
  2. LOSARTAN. [Concomitant]
     Active Substance: LOSARTAN
  3. METOPROLOL ER SUCCINATE [Suspect]
     Active Substance: METOPROLOL SUCCINATE
     Indication: HYPERTENSION
     Dosage: ?          QUANTITY:180 TABLET(S);?
     Route: 048
  4. AFFAIR DISCUS [Concomitant]
  5. ATROVENT [Concomitant]
     Active Substance: IPRATROPIUM BROMIDE
  6. METOPROLOL. [Concomitant]
     Active Substance: METOPROLOL
  7. AMILORIDE [Concomitant]
     Active Substance: AMILORIDE
  8. AMLODIPINE [Concomitant]
     Active Substance: AMLODIPINE BESYLATE
  9. OMEPRAZOLE. [Concomitant]
     Active Substance: OMEPRAZOLE

REACTIONS (4)
  - Swelling [None]
  - Dysphagia [None]
  - Rash [None]
  - Bradycardia [None]

NARRATIVE: CASE EVENT DATE: 20190629
